FAERS Safety Report 20854278 (Version 7)
Quarter: 2022Q2

REPORT INFORMATION
  Report Type: Report from Study
  Country: UA (occurrence: None)
  Receive Date: 20220520
  Receipt Date: 20220627
  Transmission Date: 20220721
  Serious: Yes (Hospitalization)
  Sender: FDA-Public Use
  Company Number: UA-Eisai Medical Research-EC-2022-115068

PATIENT
  Age: 62 Year
  Sex: Male
  Weight: 124 kg

DRUGS (10)
  1. LENVATINIB [Suspect]
     Active Substance: LENVATINIB
     Indication: Clear cell renal cell carcinoma
     Dosage: STARTING DOSE AT 20 MG, FLUCTUATED DOSAGE.
     Route: 048
     Dates: start: 20210804, end: 20220421
  2. LENVATINIB [Suspect]
     Active Substance: LENVATINIB
     Route: 048
     Dates: start: 20220422, end: 20220509
  3. PEMBROLIZUMAB [Suspect]
     Active Substance: PEMBROLIZUMAB
     Indication: Clear cell renal cell carcinoma
     Route: 041
     Dates: start: 20210804, end: 20220311
  4. PEMBROLIZUMAB [Suspect]
     Active Substance: PEMBROLIZUMAB
     Route: 041
     Dates: start: 20220422, end: 20220422
  5. BELZUTIFAN [Suspect]
     Active Substance: BELZUTIFAN
     Indication: Clear cell renal cell carcinoma
     Dosage: STARTING DOSE AT 120 MG, FLUCTUATED DOSAGE.
     Route: 048
     Dates: start: 20210804, end: 20211121
  6. BELZUTIFAN [Suspect]
     Active Substance: BELZUTIFAN
     Route: 048
     Dates: start: 20220106, end: 20220126
  7. HYDROCHLOROTHIAZIDE\LOSARTAN POTASSIUM [Concomitant]
     Active Substance: HYDROCHLOROTHIAZIDE\LOSARTAN POTASSIUM
     Dates: start: 20210825, end: 20220511
  8. AMLODIPINE [Concomitant]
     Active Substance: AMLODIPINE BESYLATE
     Dates: start: 20210825, end: 20220511
  9. BISOPROLOL [Concomitant]
     Active Substance: BISOPROLOL
     Dates: start: 20210916, end: 20220511
  10. LEVOTHYROXINE SODIUM [Concomitant]
     Active Substance: LEVOTHYROXINE SODIUM
     Dates: start: 20211215, end: 20220511

REACTIONS (1)
  - Duodenal stenosis [Recovered/Resolved]

NARRATIVE: CASE EVENT DATE: 20220510
